FAERS Safety Report 9307001 (Version 1)
Quarter: 2013Q2

REPORT INFORMATION
  Report Type: Spontaneous
  Country: GB (occurrence: GB)
  Receive Date: 20130523
  Receipt Date: 20130523
  Transmission Date: 20140414
  Serious: Yes (Other)
  Sender: FDA-Public Use
  Company Number: GB-009507513-1305GBR011941

PATIENT
  Age: 67 Year
  Sex: Male

DRUGS (3)
  1. ZISPIN SOLTAB [Suspect]
     Dosage: 15 MG
     Route: 048
     Dates: start: 20130415
  2. ZISPIN SOLTAB [Suspect]
     Dosage: 15 MG
     Route: 048
     Dates: end: 20130408
  3. RASAGILINE [Concomitant]
     Dosage: 1 MG
     Route: 048

REACTIONS (1)
  - Anxiety [Recovered/Resolved]
